FAERS Safety Report 4465386-0 (Version None)
Quarter: 2004Q4

REPORT INFORMATION
  Report Type: 
  Country: None (occurrence: None)
  Receive Date: 20041004
  Receipt Date: 20040924
  Transmission Date: 20050328
  Serious: Yes (Hospitalization)
  Sender: FDA-Public Use
  Company Number: FR-ROCHE-381370

PATIENT
  Age: 46 Year
  Sex: Female

DRUGS (7)
  1. RIVOTRIL [Suspect]
     Indication: AGITATION
     Dosage: A TOTAL OF 3.
     Route: 030
     Dates: start: 20040827
  2. ZYPREXA [Interacting]
     Indication: AGITATION
     Dosage: TOTAL OF 5
     Route: 030
     Dates: start: 20040827
  3. MODOPAR [Interacting]
     Indication: PARKINSON'S DISEASE
     Route: 065
  4. MODOPAR [Interacting]
     Dosage: RESTARTED AFTER A BREAK OF 48 HOURS.
     Route: 065
  5. TERCIAN [Suspect]
     Indication: AGITATION
     Route: 048
     Dates: start: 20040827
  6. OTRASEL [Concomitant]
     Indication: PARKINSON'S DISEASE
  7. PARLODEL [Concomitant]
     Indication: PARKINSON'S DISEASE

REACTIONS (6)
  - AGITATION [None]
  - BLOOD CREATINE PHOSPHOKINASE INCREASED [None]
  - DRUG INTERACTION [None]
  - MYOGLOBINURIA [None]
  - PSYCHOTIC DISORDER [None]
  - SOMNOLENCE [None]
